FAERS Safety Report 17822008 (Version 1)
Quarter: 2020Q2

REPORT INFORMATION
  Report Type: Report from Study
  Country: CA (occurrence: CA)
  Receive Date: 20200526
  Receipt Date: 20200526
  Transmission Date: 20200714
  Serious: No
  Sender: FDA-Public Use
  Company Number: CA-TOLMAR, INC.-19CA000989

PATIENT
  Age: 64 Year
  Sex: Male

DRUGS (1)
  1. ELIGARD [Suspect]
     Active Substance: LEUPROLIDE ACETATE
     Indication: PROSTATE CANCER
     Dosage: 30MG/4MONTHS
     Route: 065
     Dates: start: 20190712

REACTIONS (3)
  - Asthenia [Recovering/Resolving]
  - Hot flush [Recovering/Resolving]
  - Myalgia [Recovering/Resolving]

NARRATIVE: CASE EVENT DATE: 201907
